FAERS Safety Report 9282159 (Version 1)
Quarter: 2013Q2

REPORT INFORMATION
  Report Type: Spontaneous
  Country: US (occurrence: US)
  Receive Date: 20130510
  Receipt Date: 20130510
  Transmission Date: 20140414
  Serious: Yes (Other)
  Sender: FDA-Public Use
  Company Number: US-AMGEN-USASP2013032400

PATIENT
  Sex: Female

DRUGS (2)
  1. ENBREL [Suspect]
     Indication: RHEUMATOID ARTHRITIS
     Dosage: UNK
  2. PREDNISONE [Concomitant]
     Dosage: 25 MG, QD

REACTIONS (5)
  - Precancerous skin lesion [Unknown]
  - Pituitary-dependent Cushing^s syndrome [Unknown]
  - Oedema [Unknown]
  - Rheumatoid arthritis [Unknown]
  - Flushing [Unknown]
